FAERS Safety Report 4749520-0 (Version None)
Quarter: 2005Q3

REPORT INFORMATION
  Report Type: 
  Country: None (occurrence: None)
  Receive Date: 20050819
  Receipt Date: 20050809
  Transmission Date: 20060218
  Serious: Yes (Other)
  Sender: FDA-Public Use
  Company Number: GXKR2005DE01459

PATIENT
  Sex: Female

DRUGS (1)
  1. SULFAMETHOXAZOLE+TRIMETHOPRIM (NGX) SULFA METHOXAZOLE, TRIMETHOPRIM)TA [Suspect]
     Indication: URINARY TRACT INFECTION
     Dosage: 960 MG, ORAL
     Route: 048
     Dates: start: 20050719

REACTIONS (11)
  - AGEUSIA [None]
  - ARTHRALGIA [None]
  - CHILLS [None]
  - ERYTHEMA [None]
  - HYPERSENSITIVITY [None]
  - OEDEMA GENITAL [None]
  - OEDEMA PERIPHERAL [None]
  - PAIN IN EXTREMITY [None]
  - PRURITUS ALLERGIC [None]
  - SKIN EXFOLIATION [None]
  - SWELLING FACE [None]
